FAERS Safety Report 11806196 (Version 2)
Quarter: 2016Q2

REPORT INFORMATION
  Report Type: Spontaneous
  Country: DE (occurrence: DE)
  Receive Date: 20151207
  Receipt Date: 20160414
  Transmission Date: 20160815
  Serious: Yes (Life-Threatening, Hospitalization)
  Sender: FDA-Public Use
  Company Number: DE-BAYER-2015-478489

PATIENT
  Age: 26 Year
  Sex: Female
  Weight: 60 kg

DRUGS (7)
  1. PARACETAMOL [Concomitant]
     Active Substance: ACETAMINOPHEN
     Dosage: 500 MG, TID
  2. NOVALGIN [Concomitant]
     Active Substance: METAMIZOLE SODIUM
     Dosage: 30 GTT, TID
  3. PARACODIN [DIHYDROCODEINE] [Concomitant]
     Dosage: 20 GTT, TID
  4. PENTAZOL [Concomitant]
     Indication: GASTRITIS
     Dosage: 40 MG, QD
  5. IBUPROFEN. [Concomitant]
     Active Substance: IBUPROFEN
     Dosage: TID
  6. VALORON [Concomitant]
     Active Substance: TILIDINE HYDROCHLORIDE
     Dosage: 1 DF, BID
  7. YAZ [Suspect]
     Active Substance: DROSPIRENONE\ETHINYL ESTRADIOL
     Indication: MENSTRUATION IRREGULAR
     Dosage: 1 DF, QD
     Route: 048
     Dates: start: 201508, end: 201510

REACTIONS (7)
  - Tachycardia [Not Recovered/Not Resolved]
  - Pneumonia [Not Recovered/Not Resolved]
  - Cardiovascular disorder [Not Recovered/Not Resolved]
  - Haemoptysis [Not Recovered/Not Resolved]
  - Pulmonary embolism [Not Recovered/Not Resolved]
  - Pelvic venous thrombosis [Not Recovered/Not Resolved]
  - Respiratory failure [Not Recovered/Not Resolved]

NARRATIVE: CASE EVENT DATE: 20151031
